FAERS Safety Report 6050284-1 (Version None)
Quarter: 2009Q1

REPORT INFORMATION
  Report Type: 
  Country: None (occurrence: None)
  Receive Date: 20090126
  Receipt Date: 20090112
  Transmission Date: 20090719
  Serious: Yes (Other)
  Sender: FDA-Public Use
  Company Number: CA-ROCHE-607675

PATIENT
  Sex: Female

DRUGS (2)
  1. PEG-INTERFERON ALFA 2A (RO 25-8310) [Suspect]
     Indication: HEPATITIS B
     Route: 058
     Dates: end: 20090101
  2. RIBAVIRIN [Suspect]
     Indication: HEPATITIS B
     Route: 048
     Dates: end: 20090101

REACTIONS (1)
  - THROMBOSIS [None]
